FAERS Safety Report 15934392 (Version 1)
Quarter: 2019Q1

REPORT INFORMATION
  Report Type: Spontaneous
  Country: FR (occurrence: FR)
  Receive Date: 20190207
  Receipt Date: 20190207
  Transmission Date: 20190417
  Serious: Yes (Other)
  Sender: FDA-Public Use
  Company Number: FR-MYLANLABS-2019M1010955

PATIENT
  Age: 69 Year
  Sex: Male
  Weight: 55 kg

DRUGS (3)
  1. CIPROFLOXACINE KABI [Suspect]
     Active Substance: CIPROFLOXACIN
     Indication: LUNG DISORDER
     Dosage: 1200 MILLIGRAM, QD
     Route: 042
     Dates: start: 20180622, end: 20180706
  2. POTASSIUM CHLORIDE. [Suspect]
     Active Substance: POTASSIUM CHLORIDE
     Indication: HYPONATRAEMIA
     Dosage: UNK, (1G ON 25/06 AND 4G ON 26/06)
     Route: 042
     Dates: start: 20180625, end: 20180626
  3. PIPERACILLIN AND TAZOBACTAM [Suspect]
     Active Substance: PIPERACILLIN SODIUM\TAZOBACTAM SODIUM
     Indication: LUNG DISORDER
     Dosage: 12 GRAM, QD
     Route: 042
     Dates: start: 20180622, end: 20180706

REACTIONS (2)
  - Thrombophlebitis superficial [Recovered/Resolved]
  - Lymphangitis [Recovered/Resolved]

NARRATIVE: CASE EVENT DATE: 20180625
